FAERS Safety Report 10952734 (Version 1)
Quarter: 2015Q1

REPORT INFORMATION
  Report Type: Spontaneous
  Country: US (occurrence: None)
  Receive Date: 20150226
  Receipt Date: 20150226
  Transmission Date: 20150721
  Serious: Yes (Hospitalization)
  Sender: FDA-Public Use
  Company Number: TAP2009A00838

PATIENT
  Age: 48 Year
  Sex: Male
  Weight: 84.37 kg

DRUGS (5)
  1. PREVACID [Suspect]
     Active Substance: LANSOPRAZOLE
     Indication: GASTROOESOPHAGEAL REFLUX DISEASE
     Route: 048
     Dates: start: 200809, end: 2008
  2. PREVACID [Suspect]
     Active Substance: LANSOPRAZOLE
     Indication: OESOPHAGITIS
     Route: 048
     Dates: start: 200809, end: 2008
  3. PREVACID [Suspect]
     Active Substance: LANSOPRAZOLE
     Indication: DYSPEPSIA
     Route: 048
     Dates: start: 200809, end: 2008
  4. NEXIUM [Concomitant]
     Active Substance: ESOMEPRAZOLE MAGNESIUM
  5. LIPITOR [Suspect]
     Active Substance: ATORVASTATIN CALCIUM
     Indication: BLOOD CHOLESTEROL INCREASED
     Route: 048

REACTIONS (11)
  - Dysphagia [None]
  - Dyspepsia [None]
  - Nausea [None]
  - Oesophageal spasm [None]
  - Blood creatine phosphokinase increased [None]
  - Condition aggravated [None]
  - Myalgia [None]
  - Weight decreased [None]
  - Chest pain [None]
  - Gastrooesophageal reflux disease [None]
  - Dehydration [None]

NARRATIVE: CASE EVENT DATE: 200901
